FAERS Safety Report 9579905 (Version 1)
Quarter: 2013Q3

REPORT INFORMATION
  Report Type: Spontaneous
  Country: US (occurrence: None)
  Receive Date: 20130916
  Receipt Date: 20130916
  Transmission Date: 20140515
  Serious: Yes (Other)
  Sender: FDA-Public Use
  Company Number: JPI-P-026396

PATIENT
  Age: 56 Year
  Sex: Female
  Weight: 65.77 kg

DRUGS (9)
  1. XYREM (500 MILLIGRAM/MILLILITERS, SOLUTION) (SODIUM OXYBATE) [Suspect]
     Indication: CATAPLEXY
     Route: 048
     Dates: start: 20121031
  2. GABAPENTIN [Concomitant]
  3. DULOXETINE HYDROCHLORIDE [Concomitant]
  4. ALPRAZOLAM [Concomitant]
  5. HYDROCODONE WITH ACETAMINOPHEN [Concomitant]
  6. LEVOTHYROXINE [Concomitant]
  7. FOLIC ACID [Concomitant]
  8. CALCIUM WITH VITAMIN D3 [Concomitant]
  9. LISINOPRIL [Concomitant]

REACTIONS (2)
  - Blood pressure increased [None]
  - Condition aggravated [None]
